FAERS Safety Report 11261918 (Version 1)
Quarter: 2015Q3

REPORT INFORMATION
  Report Type: Spontaneous
  Country: FR (occurrence: FR)
  Receive Date: 20150710
  Receipt Date: 20150710
  Transmission Date: 20151125
  Serious: Yes (Hospitalization)
  Sender: FDA-Public Use
  Company Number: FR-SA-2015SA097297

PATIENT
  Age: 86 Year
  Sex: Male
  Weight: 60 kg

DRUGS (7)
  1. LASILIX SPECIAL [Suspect]
     Active Substance: FUROSEMIDE
     Indication: CARDIAC FAILURE
     Route: 048
     Dates: start: 20140915, end: 20141021
  2. BISOPROLOL [Concomitant]
     Active Substance: BISOPROLOL
     Route: 048
  3. LEVOTHYROX [Concomitant]
     Active Substance: LEVOTHYROXINE
     Route: 048
  4. FORLAX [Concomitant]
     Active Substance: POLYETHYLENE GLYCOL 4000
     Route: 048
  5. LASILIX SPECIAL [Suspect]
     Active Substance: FUROSEMIDE
     Indication: CARDIAC FAILURE
     Route: 048
  6. XATRAL [Concomitant]
     Active Substance: ALFUZOSIN
     Dosage: PROLONGED RELEASE TABLET, STRENGTH; 10MG
     Route: 048
  7. CALCIPARINE [Concomitant]
     Active Substance: HEPARIN CALCIUM
     Dosage: 5000 IU / 0.2 ML SOLUTION FOR INJECTION BY SUBCUTANEOUSLY IN PRE-FILLED SYRINGE
     Route: 058

REACTIONS (5)
  - Weight decreased [Recovered/Resolved]
  - Hyponatraemia [Recovered/Resolved]
  - Malaise [Recovered/Resolved]
  - Hypokalaemia [Recovered/Resolved]
  - Hypotension [Recovered/Resolved]

NARRATIVE: CASE EVENT DATE: 20141021
